FAERS Safety Report 7005060-X (Version None)
Quarter: 2010Q3

REPORT INFORMATION
  Report Type: 
  Country: None (occurrence: None)
  Receive Date: 20100920
  Receipt Date: 20100920
  Transmission Date: 20110219
  Serious: Yes (Death)
  Sender: FDA-Public Use
  Company Number: None

PATIENT
  Sex: Female
  Weight: 56.5 kg

DRUGS (1)
  1. GEMCITABINE HCL [Suspect]
     Dosage: 6450 MG
     Dates: end: 20100909

REACTIONS (1)
  - DEATH [None]
